FAERS Safety Report 5766861-9 (Version None)
Quarter: 2008Q2

REPORT INFORMATION
  Report Type: 
  Country: None (occurrence: None)
  Receive Date: 20080609
  Receipt Date: 20080529
  Transmission Date: 20081010
  Serious: Yes (Hospitalization)
  Sender: FDA-Public Use
  Company Number: GXKR2008GB04908

PATIENT
  Age: 60 Year
  Sex: Male
  Weight: 117 kg

DRUGS (10)
  1. AMLODIPINE [Suspect]
     Indication: HYPERTENSION
     Dosage: 10 MG, ORAL
     Route: 048
     Dates: start: 20080420, end: 20080422
  2. AMIODARONE HCL [Concomitant]
  3. ACETYLSALICYLIC ACID SRT [Concomitant]
  4. ATORVASTATIN CALCIUM [Concomitant]
  5. BISOPROLOL FUMARATE [Concomitant]
  6. CITALOPRAM HYDROBROMIDE [Concomitant]
  7. DOXAZOSIN (DOXAZOSIN) [Concomitant]
  8. FUROSEMIDE [Concomitant]
  9. GLICLAZIDE (GLICLAZIDE) [Concomitant]
  10. LANSOPRAZOLE [Concomitant]

REACTIONS (2)
  - DRUG ERUPTION [None]
  - VASCULITIS [None]
